FAERS Safety Report 22531840 (Version 1)
Quarter: 2023Q2

REPORT INFORMATION
  Report Type: Spontaneous
  Country: SK (occurrence: SK)
  Receive Date: 20230607
  Receipt Date: 20230607
  Transmission Date: 20230722
  Serious: Yes (Death, Other)
  Sender: FDA-Public Use
  Company Number: SK-TAKEDA-2023TUS055993

PATIENT
  Age: 63 Year
  Sex: Female
  Weight: 58 kg

DRUGS (1)
  1. HYQVIA [Suspect]
     Active Substance: HUMAN IMMUNOGLOBULIN G\HYALURONIDASE RECOMBINANT HUMAN
     Indication: Product used for unknown indication
     Dosage: 20 GRAM, Q4WEEKS
     Route: 065
     Dates: start: 20220427, end: 202304

REACTIONS (1)
  - Death [Fatal]

NARRATIVE: CASE EVENT DATE: 20230601
